FAERS Safety Report 16610665 (Version 1)
Quarter: 2019Q3

REPORT INFORMATION
  Report Type: Spontaneous
  Country: US (occurrence: US)
  Receive Date: 20190722
  Receipt Date: 20190722
  Transmission Date: 20191004
  Serious: Yes (Hospitalization, Other)
  Sender: FDA-Public Use
  Company Number: US-B.I. PHARMACEUTICALS,INC./RIDGEFIELD-2019-US-000621

PATIENT
  Sex: Male

DRUGS (2)
  1. SPIRIVA RESPIMAT [Suspect]
     Active Substance: TIOTROPIUM BROMIDE
     Indication: CHRONIC OBSTRUCTIVE PULMONARY DISEASE
     Dosage: 2 SPRAY QD
     Route: 065
     Dates: start: 2017, end: 2017
  2. SPIRIVA RESPIMAT [Suspect]
     Active Substance: TIOTROPIUM BROMIDE
     Route: 065
     Dates: start: 2019

REACTIONS (3)
  - Aortic valve incompetence [Not Recovered/Not Resolved]
  - Hernia repair [Unknown]
  - Aortic valve replacement [Not Recovered/Not Resolved]

NARRATIVE: CASE EVENT DATE: 2019
